FAERS Safety Report 4519375-8 (Version None)
Quarter: 2004Q4

REPORT INFORMATION
  Report Type: 
  Country: None (occurrence: None)
  Receive Date: 20041202
  Receipt Date: 20041123
  Transmission Date: 20050328
  Serious: Yes (Hospitalization)
  Sender: FDA-Public Use
  Company Number: UKP04000432

PATIENT
  Age: 76 Year
  Sex: Female
  Weight: 70 kg

DRUGS (3)
  1. ACTONEL [Suspect]
     Indication: OSTEOPOROSIS
     Dosage: 35 MG, 1/WEEK, ORAL
     Route: 048
     Dates: start: 20031204, end: 20040801
  2. PREDNISOLONE [Suspect]
  3. CALCEOS (CALCIUM CARBONATE, COLECALCIFEROL) [Suspect]

REACTIONS (1)
  - THYROTOXIC CRISIS [None]
